FAERS Safety Report 10413909 (Version 1)
Quarter: 2014Q1

REPORT INFORMATION
  Report Type: Spontaneous
  Country: US (occurrence: None)
  Receive Date: 20140214
  Receipt Date: 20140214
  Transmission Date: 20141002
  Serious: Yes (Hospitalization)
  Sender: FDA-Public Use
  Company Number: None

PATIENT
  Age: 34 Year
  Sex: Female

DRUGS (4)
  1. TECFIDERA [Suspect]
  2. TERIFLUNOMIDE [Suspect]
  3. FAMOTIDINE [Concomitant]
  4. PROCHLORPERAZINE [Concomitant]

REACTIONS (6)
  - Dehydration [None]
  - Renal failure acute [None]
  - Renal tubular necrosis [None]
  - Tubulointerstitial nephritis [None]
  - Nausea [None]
  - Fatigue [None]
